FAERS Safety Report 6089470-3 (Version None)
Quarter: 2009Q1

REPORT INFORMATION
  Report Type: 
  Country: None (occurrence: None)
  Receive Date: 20090218
  Receipt Date: 20090218
  Transmission Date: 20090719
  Serious: Yes (Hospitalization)
  Sender: FDA-Public Use
  Company Number: None

PATIENT
  Sex: Male
  Weight: 81.3 kg

DRUGS (8)
  1. DASATINIB - BMS [Suspect]
     Indication: GLIOBLASTOMA MULTIFORME
     Dosage: 100 MG QD PO
     Route: 048
     Dates: start: 20080506
  2. ERLOTINIB GENETECH [Suspect]
     Indication: GLIOBLASTOMA MULTIFORME
     Dosage: 450 MG QD PO
     Route: 048
     Dates: start: 20080506
  3. ASPIRIN [Concomitant]
  4. VYTORIN [Concomitant]
  5. DEXAMETHASONE [Concomitant]
  6. METOPROLOL [Concomitant]
  7. DILANTIN [Concomitant]
  8. ZANTAC [Concomitant]

REACTIONS (11)
  - ASTHENIA [None]
  - COLITIS [None]
  - COUGH [None]
  - DECREASED APPETITE [None]
  - DEHYDRATION [None]
  - MALAISE [None]
  - MENTAL STATUS CHANGES [None]
  - NASOPHARYNGITIS [None]
  - OROPHARYNGEAL PAIN [None]
  - RENAL FAILURE ACUTE [None]
  - URINARY TRACT INFECTION [None]
